FAERS Safety Report 15800004 (Version 3)
Quarter: 2019Q2

REPORT INFORMATION
  Report Type: Spontaneous
  Country: US (occurrence: US)
  Receive Date: 20190108
  Receipt Date: 20190510
  Transmission Date: 20190711
  Serious: Yes (Other)
  Sender: FDA-Public Use
  Company Number: US-SHIRE-US201850178

PATIENT
  Sex: Female

DRUGS (4)
  1. CARBATROL [Suspect]
     Active Substance: CARBAMAZEPINE
     Dosage: 200 MILLIGRAM, 3X/DAY:TID (5 CAPSULES)
     Route: 048
  2. CARBATROL [Suspect]
     Active Substance: CARBAMAZEPINE
     Indication: SEIZURE
     Dosage: 400 MG, 3X/DAY:TID
     Route: 065
  3. CARBATROL [Suspect]
     Active Substance: CARBAMAZEPINE
     Dosage: 200 MILLIGRAM 4 CAPSULES A DAY
     Route: 048
  4. CARBATROL [Suspect]
     Active Substance: CARBAMAZEPINE
     Indication: EPILEPSY
     Dosage: 400 MG, 2X/DAY:BID
     Route: 065

REACTIONS (7)
  - Pyrexia [Unknown]
  - Product use issue [Recovered/Resolved]
  - Adverse drug reaction [Unknown]
  - Generalised tonic-clonic seizure [Recovered/Resolved]
  - Off label use [Unknown]
  - Arthralgia [Unknown]
  - Unevaluable event [Unknown]

NARRATIVE: CASE EVENT DATE: 20190311
